FAERS Safety Report 8219777-2 (Version None)
Quarter: 2012Q1

REPORT INFORMATION
  Report Type: 
  Country: None (occurrence: None)
  Receive Date: 20120319
  Receipt Date: 20120311
  Transmission Date: 20120608
  Serious: No
  Sender: FDA-Public Use
  Company Number: US-BAYER-2012-025630

PATIENT

DRUGS (2)
  1. ANTIBIOTICS [Concomitant]
  2. ALEVE (CAPLET) [Suspect]
     Indication: TOOTHACHE
     Route: 048

REACTIONS (1)
  - TOOTHACHE [None]
